FAERS Safety Report 23701169 (Version 1)
Quarter: 2024Q2

REPORT INFORMATION
  Report Type: Other
  Country: JP (occurrence: JP)
  Receive Date: 20240403
  Receipt Date: 20240403
  Transmission Date: 20240716
  Serious: Yes (Hospitalization)
  Sender: FDA-Public Use
  Company Number: JP-DEXPHARM-2024-0768

PATIENT
  Age: 30 Year
  Sex: Male

DRUGS (2)
  1. ESOMEPRAZOLE [Suspect]
     Active Substance: ESOMEPRAZOLE
     Indication: Peptic ulcer
     Dosage: 20 MG/DAY
  2. LANSOPRAZOLE [Suspect]
     Active Substance: LANSOPRAZOLE
     Indication: Peptic ulcer
     Dosage: 30 MG/DAY

REACTIONS (3)
  - Drug ineffective [Recovered/Resolved]
  - Hypergastrinaemia [Unknown]
  - Ulcer haemorrhage [Recovered/Resolved]
